FAERS Safety Report 6211720-0 (Version None)
Quarter: 2009Q2

REPORT INFORMATION
  Report Type: 
  Country: None (occurrence: None)
  Receive Date: 20090602
  Receipt Date: 20090520
  Transmission Date: 20091009
  Serious: Yes (Hospitalization, Other)
  Sender: FDA-Public Use
  Company Number: JP-PFIZER INC-2009204690

PATIENT
  Age: 74 Year

DRUGS (3)
  1. CHAMPIX [Suspect]
     Indication: SMOKING CESSATION THERAPY
     Dosage: 0.5 MG, 1X/DAY
     Route: 048
     Dates: start: 20090331, end: 20090403
  2. CHAMPIX [Suspect]
     Dosage: 1 MG, 1X/DAY
     Route: 048
     Dates: start: 20090403, end: 20090406
  3. CHAMPIX [Suspect]
     Dosage: 2 MG, 1X/DAY
     Route: 048
     Dates: end: 20090413

REACTIONS (2)
  - HEPATIC FUNCTION ABNORMAL [None]
  - TUMOUR MARKER INCREASED [None]
